FAERS Safety Report 6413982-3 (Version None)
Quarter: 2009Q4

REPORT INFORMATION
  Report Type: 
  Country: None (occurrence: None)
  Receive Date: 20091026
  Receipt Date: 20091013
  Transmission Date: 20100525
  Serious: Yes (Hospitalization)
  Sender: FDA-Public Use
  Company Number: JP-JNJFOC-20091004355

PATIENT
  Sex: Male

DRUGS (1)
  1. FINIBAX [Suspect]
     Indication: PNEUMONIA
     Route: 041

REACTIONS (1)
  - HYPERKALAEMIA [None]
